FAERS Safety Report 4361311-1 (Version None)
Quarter: 2004Q2

REPORT INFORMATION
  Report Type: 
  Country: None (occurrence: None)
  Receive Date: 20040520
  Receipt Date: 20040511
  Transmission Date: 20050107
  Serious: Yes (Other)
  Sender: FDA-Public Use
  Company Number: US-MERCK-0405USA00738B1

PATIENT

DRUGS (1)
  1. SINGULAIR [Suspect]
     Indication: ASTHMA

REACTIONS (5)
  - ABORTION SPONTANEOUS [None]
  - CHROMOSOME ABNORMALITY [None]
  - COMPLICATIONS OF MATERNAL EXPOSURE TO THERAPEUTIC DRUGS [None]
  - MATERNAL DRUGS AFFECTING FOETUS [None]
  - PREGNANCY [None]
